FAERS Safety Report 6958268-3 (Version None)
Quarter: 2010Q3

REPORT INFORMATION
  Report Type: 
  Country: None (occurrence: None)
  Receive Date: 20100827
  Receipt Date: 20100827
  Transmission Date: 20110219
  Serious: Yes (Disabling)
  Sender: FDA-Public Use
  Company Number: None

PATIENT
  Sex: Male
  Weight: 67.586 kg

DRUGS (2)
  1. NASALIDE [Suspect]
     Indication: MULTIPLE ALLERGIES
     Dosage: SPRAY AT LEAST 2 A DAY
     Dates: start: 19800101, end: 20000101
  2. FLONASE [Suspect]
     Dosage: SPRAY AT LEAST 2 A DAY

REACTIONS (6)
  - BLINDNESS [None]
  - DRUG EFFECT DECREASED [None]
  - INTRAOCULAR PRESSURE INCREASED [None]
  - OPTIC NERVE INJURY [None]
  - PRODUCT LABEL ISSUE [None]
  - UNEVALUABLE EVENT [None]
